FAERS Safety Report 5581095-9 (Version None)
Quarter: 2007Q4

REPORT INFORMATION
  Report Type: 
  Country: None (occurrence: None)
  Receive Date: 20071227
  Receipt Date: 20071217
  Transmission Date: 20080405
  Serious: Yes (Death)
  Sender: FDA-Public Use
  Company Number: 07H-163-0313601-00

PATIENT
  Age: 86 Year
  Sex: Male
  Weight: 66.2252 kg

DRUGS (42)
  1. HEPARIN SODIUM [Suspect]
     Indication: THROMBOEMBOLIC STROKE
     Dates: start: 20071215, end: 20071215
  2. SODIUM CHLORIDE [Concomitant]
  3. AMIODARONE IN DEXTROSE 5% (AMIODARONE) [Concomitant]
  4. HEPARIN IN 250 ML D5W(HEPARIN SODIUM IN DEXTROSE) [Concomitant]
  5. INSULIN - HUMAN REGULAR(INSULIN HUMAN) [Concomitant]
  6. NITROGLYCERIN IN 250 ML D5W(DEXTROSE W/NITROGLYCERINE) [Concomitant]
  7. NOREPINEPHRINE IN DEXTROSE 5% (NOREPINEPHRINE) [Concomitant]
  8. NICARDIPINE IN DEXTROSE 5%(NICARDIPINE) [Concomitant]
  9. ASPIRIN 81 MG CHEW TAB(ACETYLSALICYLIC ACID) [Concomitant]
  10. ESOMEPRAZOLE 20 MG CAP(ESOMEPRAZOLE) [Concomitant]
  11. ESOMEPRAZOLE 40 MG VIAL(ESOMEPRAZOLE) [Concomitant]
  12. METOPROLOL 25 MG TAB(METOPROLOL) [Concomitant]
  13. SIMVASTATIN 40 MG TAB(SIMVASTATIN) [Concomitant]
  14. SODIUM CHLORIDE FLUSH 0.9%(SODIUM CHLORIDE) [Concomitant]
  15. WARFARIN 5 MG TAB(WARFARIN) [Concomitant]
  16. ACETAMINOPHEN 650 MG SUPP(PARACETAMOL) [Concomitant]
  17. ACETAMINOPHEN 325 MG CAPLET(PARACETAMOL) [Concomitant]
  18. OXYCODONE 5 MG/ACETAMINOPHEN 325 MG(OXYCODONE/APAP) [Concomitant]
  19. ALBUMIN 5%(ALBUMIN) [Concomitant]
  20. ATROPINE 1 MG/10 ML SYRINGE(ATROPINE) [Concomitant]
  21. BISACODYL 5 MG EC TAB(BISACODYL) [Concomitant]
  22. DEXTROSE 5%(GLUCOSE) [Concomitant]
  23. DILTIAZEM 25 MG/5 ML VIAL(DILTIAZEM) [Concomitant]
  24. ESTAZOLAM 1 MG TAB(ESTAZOLAM) [Concomitant]
  25. FUROSEMIDE 20 MG/ 2ML VIAL (FUROSEMIDE) [Concomitant]
  26. HEPARIN 1000 UNITS/ML 10 ML(HEPARIN) [Concomitant]
  27. HYDROCODONE 5 MG/ ACETAMINOPHEN 500(VICODIN) [Concomitant]
  28. LORAZEPAM 2 MG/ 1 ML INJ (LORAZEPAM) [Concomitant]
  29. LORAZEPAM 0.5 MG TAB(LORAZEPAM) [Concomitant]
  30. MAG-AL PLUS SUSP 30 ML [Concomitant]
  31. MAGNESIUM SULFATE IN DEXTROSE 5%(MAGNESIUM SULFATE) [Concomitant]
  32. MAGNESIUM SULFATE IN SODIUM CHLORIDE 0.9%(MAGNESIUM SULFATE) [Concomitant]
  33. MEPERIDINE 25 MG/ML INJ (PETHIDINE) [Concomitant]
  34. MILK OF MAG SUSP 30 ML CUP (MAGNESIUM HYDROXIDE) [Concomitant]
  35. MORPHINE VARIABLE DOSE(MORPHINE) [Concomitant]
  36. POTASSIUM CHLORIDE IN 100 ML(POTASSIUM CHLORIDE) [Concomitant]
  37. LIDOCAINE [Concomitant]
  38. PROCHLORPERAZINE 5 MG TAB(PROCHLORPERAZINE) [Concomitant]
  39. PROCHLORPERAZINE 10 MG/2ML (PROCHLORPERAZINE) [Concomitant]
  40. SODIUM BICARB 8.4% SYRINGE(SODIUM BICARBONATE) [Concomitant]
  41. SODIUM CHLORIDE 0.9% 500 ML(SODIUM CHLORIDE) [Concomitant]
  42. TEMAZEPAM 7.5 MG CAP(TEMAZEPAM) [Concomitant]

REACTIONS (3)
  - INAPPROPRIATE DEVICE PROGRAMMING [None]
  - INCORRECT DOSE ADMINISTERED [None]
  - MEDICATION ERROR [None]
